FAERS Safety Report 8832282 (Version 1)
Quarter: 2012Q4

REPORT INFORMATION
  Report Type: 
  Country: US (occurrence: US)
  Receive Date: 20121009
  Receipt Date: 20121009
  Transmission Date: 20130627
  Serious: Yes (Other)
  Sender: FDA-Public Use
  Company Number: US-ROCHE-752253

PATIENT
  Sex: Male
  Weight: 72.6 kg

DRUGS (3)
  1. ACCUTANE [Suspect]
     Indication: ACNE
     Dosage: 20 mg - 60mg
     Route: 048
     Dates: start: 1996, end: 1997
  2. ACCUTANE [Suspect]
     Route: 065
     Dates: start: 19970610, end: 199812
  3. KEFLEX [Concomitant]

REACTIONS (10)
  - Colitis ulcerative [Unknown]
  - Inflammatory bowel disease [Unknown]
  - Abdominal pain [Unknown]
  - Rectal haemorrhage [Unknown]
  - Rectal polyp [Unknown]
  - Depression [Unknown]
  - Dry skin [Unknown]
  - Chapped lips [Unknown]
  - Epistaxis [Unknown]
  - Irritable bowel syndrome [Unknown]
